FAERS Safety Report 8212615-3 (Version None)
Quarter: 2012Q1

REPORT INFORMATION
  Report Type: 
  Country: None (occurrence: None)
  Receive Date: 20120315
  Receipt Date: 20120308
  Transmission Date: 20120608
  Serious: Yes (Other)
  Sender: FDA-Public Use
  Company Number: US-BAYER-2011-038080

PATIENT
  Age: 26 Year
  Sex: Female
  Weight: 55.329 kg

DRUGS (2)
  1. YAZ [Suspect]
     Indication: CONTRACEPTION
     Dosage: UNK
     Dates: start: 20060601, end: 20070501
  2. AVELOX [Concomitant]
     Dosage: UNK
     Dates: start: 20070515

REACTIONS (13)
  - CHOLECYSTITIS [None]
  - MUSCULOSKELETAL PAIN [None]
  - GALLBLADDER NON-FUNCTIONING [None]
  - PAIN [None]
  - INJURY [None]
  - ANXIETY [None]
  - NAUSEA [None]
  - EMOTIONAL DISTRESS [None]
  - GENERAL PHYSICAL HEALTH DETERIORATION [None]
  - CHOLECYSTITIS ACUTE [None]
  - ABDOMINAL PAIN UPPER [None]
  - DISCOMFORT [None]
  - VOMITING [None]
